FAERS Safety Report 4761054-6 (Version None)
Quarter: 2005Q3

REPORT INFORMATION
  Report Type: 
  Country: None (occurrence: None)
  Receive Date: 20050901
  Receipt Date: 20050822
  Transmission Date: 20060218
  Serious: Yes (Other)
  Sender: FDA-Public Use
  Company Number: DE-2005-011284

PATIENT
  Sex: Female

DRUGS (1)
  1. MIRENA [Suspect]
     Dosage: 20 ?G/DAY, CONT, ITNRA-UTERINE
     Dates: start: 20050401

REACTIONS (8)
  - ABDOMINAL PAIN LOWER [None]
  - CAPILLARY DISORDER [None]
  - CONTUSION [None]
  - DRUG INEFFECTIVE [None]
  - METRORRHAGIA [None]
  - MIGRAINE [None]
  - OVARIAN CYST [None]
  - VASCULAR RUPTURE [None]
